FAERS Safety Report 6184039-4 (Version None)
Quarter: 2009Q2

REPORT INFORMATION
  Report Type: 
  Country: None (occurrence: None)
  Receive Date: 20090508
  Receipt Date: 20090428
  Transmission Date: 20091009
  Serious: Yes (Other)
  Sender: FDA-Public Use
  Company Number: US-PFIZER INC-2008097991

PATIENT
  Sex: Female
  Weight: 64.399 kg

DRUGS (8)
  1. CHANTIX [Suspect]
     Indication: TOBACCO USER
     Dosage: 1 MG, 2X/DAY
     Route: 048
     Dates: start: 20081008, end: 20081115
  2. CHANTIX [Suspect]
     Indication: SMOKING CESSATION THERAPY
  3. SYNTHROID [Concomitant]
     Dosage: UNK
  4. ZOLOFT [Concomitant]
     Dosage: UNK
  5. PREVACID [Concomitant]
     Dosage: UNK
  6. VITAMIN D [Concomitant]
     Dosage: UNK
  7. VITAMIN B-12 [Concomitant]
     Dosage: UNK
  8. PROTONIX [Concomitant]
     Dosage: UNK

REACTIONS (3)
  - DEPRESSION [None]
  - INTENTIONAL SELF-INJURY [None]
  - SUICIDAL IDEATION [None]
